FAERS Safety Report 23230511 (Version 2)
Quarter: 2024Q2

REPORT INFORMATION
  Report Type: Spontaneous
  Country: CA (occurrence: CA)
  Receive Date: 20231127
  Receipt Date: 20240502
  Transmission Date: 20240716
  Serious: Yes (Hospitalization, Other)
  Sender: FDA-Public Use
  Company Number: CA-002147023-NVSC2022CA033352

PATIENT
  Age: 27 Year
  Sex: Female

DRUGS (6)
  1. MONTELUKAST [Suspect]
     Active Substance: MONTELUKAST SODIUM
     Indication: Chronic spontaneous urticaria
     Dosage: 10 MG
     Route: 065
  2. EPIPEN [Concomitant]
     Active Substance: EPINEPHRINE
     Indication: Product used for unknown indication
     Dosage: 0.3MG/0.3ML AUTO-INJECTO
     Route: 030
  3. RUPATADINE [Concomitant]
     Active Substance: RUPATADINE
     Dosage: 4 DOSAGE FORM, QD
     Route: 048
     Dates: start: 202202
  4. RUPATADINE [Concomitant]
     Active Substance: RUPATADINE
     Indication: Chronic spontaneous urticaria
     Dosage: UNK
     Route: 065
  5. ALBUTEROL SULFATE [Concomitant]
     Active Substance: ALBUTEROL SULFATE
     Indication: Product used for unknown indication
     Route: 065
  6. ALBUTEROL [Concomitant]
     Active Substance: ALBUTEROL
     Indication: Product used for unknown indication
     Dosage: UNK
     Route: 065

REACTIONS (36)
  - Adverse drug reaction [Recovered/Resolved]
  - Anaphylactic reaction [Unknown]
  - Angioedema [Unknown]
  - Blindness transient [Recovered/Resolved]
  - Cough [Unknown]
  - Deafness [Recovered/Resolved]
  - Dysphagia [Unknown]
  - Dysphonia [Unknown]
  - Dyspnoea [Unknown]
  - Ear pruritus [Unknown]
  - Ear swelling [Unknown]
  - Erythema [Unknown]
  - Eye swelling [Unknown]
  - Food allergy [Unknown]
  - Hypoaesthesia oral [Unknown]
  - Ill-defined disorder [Unknown]
  - Joint swelling [Recovered/Resolved]
  - Laryngeal obstruction [Unknown]
  - Lip swelling [Unknown]
  - Movement disorder [Recovered/Resolved]
  - Nasopharyngitis [Unknown]
  - Nausea [Unknown]
  - Periorbital swelling [Unknown]
  - Peripheral swelling [Unknown]
  - Product use in unapproved indication [Unknown]
  - Syncope [Unknown]
  - Wheezing [Unknown]
  - Rash pruritic [Unknown]
  - Swelling face [Unknown]
  - Swollen tongue [Unknown]
  - Pruritus [Unknown]
  - Vomiting [Unknown]
  - Urticaria [Recovered/Resolved]
  - Urticaria [Unknown]
  - Pruritus [Unknown]
  - Therapeutic response decreased [Unknown]

NARRATIVE: CASE EVENT DATE: 20220127
